FAERS Safety Report 10593050 (Version 1)
Quarter: 2014Q4

REPORT INFORMATION
  Report Type: Spontaneous
  Country: US (occurrence: None)
  Receive Date: 20141118
  Receipt Date: 20141118
  Transmission Date: 20150529
  Serious: Yes (Other)
  Sender: FDA-Public Use
  Company Number: None

PATIENT
  Age: 7 Year
  Sex: Male
  Weight: 20.41 kg

DRUGS (1)
  1. GENERIC CONCERTA [Suspect]
     Active Substance: METHYLPHENIDATE HYDROCHLORIDE
     Indication: ATTENTION DEFICIT/HYPERACTIVITY DISORDER
     Dosage: TAKEN BY MOUTH

REACTIONS (10)
  - Product substitution issue [None]
  - Educational problem [None]
  - Disturbance in attention [None]
  - Social problem [None]
  - Anger [None]
  - Drug ineffective [None]
  - Morbid thoughts [None]
  - Intentional self-injury [None]
  - Affect lability [None]
  - Depression [None]

NARRATIVE: CASE EVENT DATE: 20131001
